FAERS Safety Report 22210174 (Version 3)
Quarter: 2023Q2

REPORT INFORMATION
  Report Type: Report from Study
  Country: US (occurrence: US)
  Receive Date: 20230414
  Receipt Date: 20230626
  Transmission Date: 20230722
  Serious: Yes (Other)
  Sender: FDA-Public Use
  Company Number: US-ABBVIE-4722086

PATIENT
  Sex: Male
  Weight: 88.45 kg

DRUGS (1)
  1. HUMIRA [Suspect]
     Active Substance: ADALIMUMAB
     Indication: Psoriatic arthropathy
     Route: 058
     Dates: start: 20221101

REACTIONS (6)
  - Abdominal distension [Recovered/Resolved]
  - Injection site reaction [Unknown]
  - Injection site reaction [Recovered/Resolved]
  - Intervertebral disc operation [Not Recovered/Not Resolved]
  - Intervertebral disc operation [Recovered/Resolved]
  - Injection site swelling [Recovered/Resolved]

NARRATIVE: CASE EVENT DATE: 20230101
